FAERS Safety Report 21757123 (Version 1)
Quarter: 2022Q4

REPORT INFORMATION
  Report Type: Spontaneous
  Country: DK (occurrence: DK)
  Receive Date: 20221220
  Receipt Date: 20221220
  Transmission Date: 20230112
  Serious: Yes (Congenital Anomaly, Other)
  Sender: FDA-Public Use
  Company Number: DK-AMGEN-DNKSP2022216255

PATIENT
  Sex: Female
  Weight: 2.75 kg

DRUGS (1)
  1. ERENUMAB [Suspect]
     Active Substance: ERENUMAB
     Indication: Exposure during pregnancy
     Dosage: 140 MILLIGRAM
     Route: 064

REACTIONS (3)
  - Ventricular septal defect [Unknown]
  - Face presentation [Unknown]
  - Single umbilical artery [Unknown]
